FAERS Safety Report 8845897 (Version 2)
Quarter: 2012Q4

REPORT INFORMATION
  Report Type: 
  Country: BR (occurrence: BR)
  Receive Date: 20121017
  Receipt Date: 20121129
  Transmission Date: 20130627
  Serious: Yes (Hospitalization, Disabling)
  Sender: FDA-Public Use
  Company Number: BR-ROCHE-1142530

PATIENT
  Age: 16 Year
  Sex: Male
  Weight: 62 kg

DRUGS (2)
  1. ROACUTAN [Suspect]
     Indication: ACNE
     Route: 065
     Dates: start: 201004, end: 201006
  2. ROACUTAN [Suspect]
     Dosage: lower dose
     Route: 065
     Dates: start: 201206, end: 201208

REACTIONS (8)
  - Neoplasm [Not Recovered/Not Resolved]
  - Abasia [Recovering/Resolving]
  - Musculoskeletal stiffness [Not Recovered/Not Resolved]
  - Torticollis [Not Recovered/Not Resolved]
  - Muscular weakness [Not Recovered/Not Resolved]
  - Myalgia [Not Recovered/Not Resolved]
  - Muscle twitching [Not Recovered/Not Resolved]
  - Pain [Not Recovered/Not Resolved]
